FAERS Safety Report 4961119-X (Version None)
Quarter: 2006Q1

REPORT INFORMATION
  Report Type: 
  Country: None (occurrence: None)
  Receive Date: 20060328
  Receipt Date: 20060315
  Transmission Date: 20060701
  Serious: Yes (Life-Threatening, Hospitalization)
  Sender: FDA-Public Use
  Company Number: 2005112431

PATIENT
  Age: 66 Year
  Sex: Male
  Weight: 87.5 kg

DRUGS (6)
  1. SUTENT [Suspect]
     Indication: RENAL CELL CARCINOMA STAGE UNSPECIFIED
     Dosage: 50 MG (50 MG, DAILY), ORAL
     Route: 048
     Dates: start: 20050716, end: 20050730
  2. ESOMEPRAZOLE (ESOMEPRAZOLE) [Concomitant]
  3. METOCLOPRAMIDE [Concomitant]
  4. TRAMADOL HCL [Concomitant]
  5. ENOXAPARIN SODIUM [Concomitant]
  6. ACETAMINOPHEN [Concomitant]

REACTIONS (1)
  - RENAL FAILURE [None]
